FAERS Safety Report 5313061-2 (Version None)
Quarter: 2007Q2

REPORT INFORMATION
  Report Type: 
  Country: None (occurrence: None)
  Receive Date: 20070430
  Receipt Date: 20070418
  Transmission Date: 20071010
  Serious: Yes (Other)
  Sender: FDA-Public Use
  Company Number: US-PFIZER INC-2007031542

PATIENT
  Sex: Female
  Weight: 75 kg

DRUGS (14)
  1. CHANTIX [Suspect]
     Indication: SMOKING CESSATION THERAPY
     Dates: start: 20070417
  2. KLONOPIN [Concomitant]
  3. PAXIL [Concomitant]
  4. SEROQUEL [Concomitant]
  5. REQUIP [Concomitant]
  6. RISPERDAL [Concomitant]
  7. LITHIUM CARBONATE [Concomitant]
  8. TOPAMAX [Concomitant]
  9. LOVASTATIN [Concomitant]
     Indication: BLOOD CHOLESTEROL INCREASED
  10. CLINORIL [Concomitant]
     Indication: ARTHRITIS
  11. VERAPAMIL [Concomitant]
     Indication: HYPERTENSION
  12. LEVOTHYROXINE SODIUM [Concomitant]
  13. OSCAL [Concomitant]
  14. MULTIVITAMINS WITH MINERALS [Concomitant]

REACTIONS (3)
  - AGITATION [None]
  - HYPOMANIA [None]
  - RESTLESSNESS [None]
